FAERS Safety Report 26102978 (Version 1)
Quarter: 2025Q4

REPORT INFORMATION
  Report Type: Spontaneous
  Country: GB (occurrence: GB)
  Receive Date: 20251128
  Receipt Date: 20251128
  Transmission Date: 20260117
  Serious: Yes (Congenital Anomaly, Other)
  Sender: ABBVIE
  Company Number: GB-MHRA-EMIS-1384-9979eb11-6136-484a-8acf-4b68502d2260

PATIENT

DRUGS (2)
  1. CITALOPRAM [Suspect]
     Active Substance: CITALOPRAM
     Indication: Maternal exposure timing unspecified
     Route: 064
  2. MICONAZOLE [Concomitant]
     Active Substance: MICONAZOLE
     Indication: Product used for unknown indication
     Dosage: APPLY THINLY TO AFFECTED AREA THREE TIMES A DAY AND MASSAGE INTO SKIN. CONTINUE UNTIL RESOLUTION,...

REACTIONS (3)
  - Heart disease congenital [Unknown]
  - Foetal exposure during pregnancy [Unknown]
  - Congenital hypothyroidism [Unknown]

NARRATIVE: CASE EVENT DATE: 20250101
